FAERS Safety Report 19776740 (Version 1)
Quarter: 2021Q3

REPORT INFORMATION
  Report Type: Spontaneous
  Country: US (occurrence: US)
  Receive Date: 20210902
  Receipt Date: 20210902
  Transmission Date: 20211014
  Serious: No
  Sender: FDA-Public Use
  Company Number: US-TEVA-2021-US-1941127

PATIENT
  Age: 49 Year
  Sex: Male
  Weight: 120.2 kg

DRUGS (1)
  1. CIALIS GENERIC [Suspect]
     Active Substance: TADALAFIL
     Indication: PARAPLEGIA
     Route: 065

REACTIONS (2)
  - Product use in unapproved indication [Unknown]
  - Drug ineffective [Unknown]

NARRATIVE: CASE EVENT DATE: 2011
